FAERS Safety Report 25905639 (Version 1)
Quarter: 2025Q4

REPORT INFORMATION
  Report Type: Spontaneous
  Country: EU (occurrence: EU)
  Receive Date: 20251010
  Receipt Date: 20251010
  Transmission Date: 20260117
  Serious: Yes (Other)
  Sender: ABBVIE
  Company Number: None

PATIENT
  Age: 41 Year
  Sex: Female

DRUGS (1)
  1. RINVOQ [Suspect]
     Active Substance: UPADACITINIB
     Indication: Dermatitis
     Dosage: DOSE FORM - FILM-COATED TABLET
     Route: 048
     Dates: start: 202404, end: 20240525

REACTIONS (1)
  - Panniculitis [Recovering/Resolving]

NARRATIVE: CASE EVENT DATE: 20240525
